FAERS Safety Report 18750097 (Version 1)
Quarter: 2021Q1

REPORT INFORMATION
  Report Type: Spontaneous
  Country: CN (occurrence: CN)
  Receive Date: 20210118
  Receipt Date: 20210118
  Transmission Date: 20210419
  Serious: Yes (Other)
  Sender: FDA-Public Use
  Company Number: CN-ACCORD-214726

PATIENT
  Age: 70 Year
  Sex: Female

DRUGS (4)
  1. IRINOTECAN [Suspect]
     Active Substance: IRINOTECAN
     Indication: INTESTINAL METASTASIS
     Dosage: DAY 1 EVERY 21 DAYS
     Dates: start: 201812, end: 2019
  2. NEDAPLATIN [Suspect]
     Active Substance: NEDAPLATIN
     Indication: OVARIAN CANCER STAGE IV
     Dosage: DAYS 2?4, EVERY 21 DAYS
     Dates: start: 201812, end: 2019
  3. IRINOTECAN [Suspect]
     Active Substance: IRINOTECAN
     Indication: INTESTINAL METASTASIS
     Dosage: DAY 5 EVERY 21 DAYS
     Dates: start: 201812, end: 2019
  4. NEDAPLATIN [Suspect]
     Active Substance: NEDAPLATIN
     Indication: METASTASIS
     Dosage: DAYS 2?4, EVERY 21 DAYS
     Dates: start: 201812, end: 2019

REACTIONS (4)
  - Gastrointestinal disorder [Unknown]
  - Myelosuppression [Unknown]
  - Drug intolerance [Unknown]
  - Toxicity to various agents [Unknown]

NARRATIVE: CASE EVENT DATE: 2019
